FAERS Safety Report 7610302-3 (Version None)
Quarter: 2011Q3

REPORT INFORMATION
  Report Type: 
  Country: None (occurrence: None)
  Receive Date: 20110713
  Receipt Date: 20110713
  Transmission Date: 20111222
  Serious: Yes (Life-Threatening, Other)
  Sender: FDA-Public Use
  Company Number: None

PATIENT
  Age: 59 Year
  Sex: Male
  Weight: 71.6683 kg

DRUGS (2)
  1. NAPROXEN [Suspect]
     Indication: JOINT SWELLING
     Dosage: ONE TABLET TWICE DAY
     Dates: start: 20110614, end: 20110615
  2. NAPROXEN [Suspect]
     Indication: PAIN IN EXTREMITY
     Dosage: ONE TABLET TWICE DAY
     Dates: start: 20110614, end: 20110615

REACTIONS (7)
  - MALAISE [None]
  - HYPERHIDROSIS [None]
  - CARDIAC FLUTTER [None]
  - BLOOD PRESSURE INCREASED [None]
  - URTICARIA [None]
  - HEART RATE DECREASED [None]
  - PYREXIA [None]
